FAERS Safety Report 4483836-0 (Version None)
Quarter: 2004Q4

REPORT INFORMATION
  Report Type: 
  Country: None (occurrence: None)
  Receive Date: 20041025
  Receipt Date: 20041021
  Transmission Date: 20050328
  Serious: Yes (Hospitalization)
  Sender: FDA-Public Use
  Company Number: PHRM2004FR03161

PATIENT
  Age: 13 Year
  Sex: Female
  Weight: 42 kg

DRUGS (7)
  1. LIORESAL [Suspect]
     Dosage: 10 MG, TID
     Route: 048
     Dates: end: 20040910
  2. DEPAKENE [Suspect]
     Dosage: 500 MG, TID
     Route: 048
     Dates: end: 20040910
  3. TRIMEPRAZINE TAB [Suspect]
     Dosage: 10 MG, QD
     Route: 048
     Dates: end: 20040910
  4. SMECTA [Suspect]
     Route: 048
  5. DUPHALAC [Suspect]
     Route: 048
  6. ACETAMINOPHEN [Concomitant]
     Route: 048
  7. MOPRAL [Concomitant]
     Dosage: 10 MG, QD
     Route: 048

REACTIONS (1)
  - PANCREATITIS [None]
